FAERS Safety Report 4925288-X (Version None)
Quarter: 2006Q1

REPORT INFORMATION
  Report Type: 
  Country: None (occurrence: None)
  Receive Date: 20060228
  Receipt Date: 20060105
  Transmission Date: 20060701
  Serious: Yes (Other)
  Sender: FDA-Public Use
  Company Number: PT-GLAXOSMITHKLINE-B0405713A

PATIENT
  Age: 60 Year
  Sex: Female

DRUGS (3)
  1. AUGMENTIN [Suspect]
     Route: 048
  2. ACETAMINOPHEN [Concomitant]
  3. AMBROXOL + CLENBUTEROL [Concomitant]

REACTIONS (1)
  - HALLUCINATION, VISUAL [None]
